FAERS Safety Report 6716812-5 (Version None)
Quarter: 2010Q2

REPORT INFORMATION
  Report Type: 
  Country: None (occurrence: None)
  Receive Date: 20100510
  Receipt Date: 20100423
  Transmission Date: 20101027
  Serious: Yes (Hospitalization, Other)
  Sender: FDA-Public Use
  Company Number: US-BAYER-200941039NA

PATIENT
  Age: 39 Year
  Sex: Female
  Weight: 64 kg

DRUGS (11)
  1. YAZ [Suspect]
     Indication: ORAL CONTRACEPTION
     Route: 048
     Dates: start: 20040601, end: 20071203
  2. PAIN MEDICATION [Concomitant]
     Indication: NAUSEA
  3. LEVAQUIN [Concomitant]
     Indication: PNEUMONIA
  4. SINUS MEDICATION [Concomitant]
     Indication: SINUS DISORDER
  5. PERCOCET [Concomitant]
     Indication: PAIN
  6. XANAX [Concomitant]
  7. WARFARIN [Concomitant]
     Dates: start: 20071219, end: 20080306
  8. ORTHO-DIAPHRAGN ALLFLEX [Concomitant]
     Dates: start: 20080128
  9. LOPRESSOR [Concomitant]
     Dates: start: 20040407
  10. CELEXA [Concomitant]
     Dates: start: 20040601
  11. ZOFRAN [Concomitant]
     Dates: start: 20060501

REACTIONS (17)
  - ANXIETY [None]
  - CONSTIPATION [None]
  - DYSPNOEA [None]
  - MEDICAL DEVICE COMPLICATION [None]
  - MUSCULOSKELETAL CHEST PAIN [None]
  - NAUSEA [None]
  - PAIN [None]
  - PLEURAL EFFUSION [None]
  - PNEUMONIA [None]
  - PULMONARY EMBOLISM [None]
  - PULMONARY INFARCTION [None]
  - PYREXIA [None]
  - SELF-MEDICATION [None]
  - SINUS DISORDER [None]
  - SUPERINFECTION [None]
  - VENA CAVA THROMBOSIS [None]
  - VOMITING [None]
